FAERS Safety Report 7443649-4 (Version None)
Quarter: 2011Q2

REPORT INFORMATION
  Report Type: 
  Country: None (occurrence: None)
  Receive Date: 20110428
  Receipt Date: 20110416
  Transmission Date: 20111010
  Serious: Yes (Other)
  Sender: FDA-Public Use
  Company Number: US-PFIZER INC-2011083817

PATIENT
  Age: 62 Year
  Sex: Male
  Weight: 75.9 kg

DRUGS (2)
  1. SUNITINIB MALATE [Suspect]
     Indication: RENAL CANCER
     Dosage: 50 MG, CYCLIC, QD FOR WKS 1-4
     Route: 048
     Dates: start: 20100430
  2. CILENGITIDE [Suspect]
     Indication: RENAL CANCER
     Dosage: 2000 MG, CYCLIC, OVER 1 HR 2XWKLY, 72 HRS APART OF WKS 5 AND 6
     Route: 042
     Dates: start: 20100430

REACTIONS (2)
  - SQUAMOUS CELL CARCINOMA OF SKIN [None]
  - NEOPLASM MALIGNANT [None]
